FAERS Safety Report 8111074-9 (Version None)
Quarter: 2012Q1

REPORT INFORMATION
  Report Type: 
  Country: None (occurrence: None)
  Receive Date: 20120203
  Receipt Date: 20110401
  Transmission Date: 20120608
  Serious: No
  Sender: FDA-Public Use
  Company Number: US-GLAXOSMITHKLINE-A0921092A

PATIENT
  Age: 48 Year
  Sex: Female

DRUGS (2)
  1. LAMICTAL [Suspect]
     Indication: AFFECTIVE DISORDER
     Dosage: 25MG SINGLE DOSE
     Route: 048
     Dates: start: 20110301, end: 20110301
  2. DEPAKOTE [Concomitant]

REACTIONS (5)
  - PYREXIA [None]
  - ROCKY MOUNTAIN SPOTTED FEVER [None]
  - VOMITING [None]
  - RASH [None]
  - NAUSEA [None]
